FAERS Safety Report 24630124 (Version 1)
Quarter: 2024Q4

REPORT INFORMATION
  Report Type: Spontaneous
  Country: US (occurrence: US)
  Receive Date: 20241118
  Receipt Date: 20241118
  Transmission Date: 20250115
  Serious: Yes (Other)
  Sender: UCB
  Company Number: US-UCBSA-2024058920

PATIENT

DRUGS (3)
  1. BIMZELX [Suspect]
     Active Substance: BIMEKIZUMAB-BKZX
     Indication: Product used for unknown indication
     Dosage: UNK
     Dates: start: 20241104
  2. OTEZLA [Concomitant]
     Active Substance: APREMILAST
     Indication: Product used for unknown indication
     Dosage: UNK
  3. SOTYKTU [Concomitant]
     Active Substance: DEUCRAVACITINIB
     Indication: Product used for unknown indication
     Dosage: UNK
     Dates: start: 20241104

REACTIONS (1)
  - Condition aggravated [Unknown]
